FAERS Safety Report 13968550 (Version 3)
Quarter: 2018Q2

REPORT INFORMATION
  Report Type: Spontaneous
  Country: NO (occurrence: NO)
  Receive Date: 20170914
  Receipt Date: 20180420
  Transmission Date: 20180711
  Serious: Yes (Other)
  Sender: FDA-Public Use
  Company Number: PHHY2017NO132746

PATIENT
  Age: 20 Year
  Sex: Male

DRUGS (4)
  1. QUETIAPINE. [Suspect]
     Active Substance: QUETIAPINE
     Dosage: 200 MG, QD
     Route: 065
  2. ARIPIPRAZOLE. [Suspect]
     Active Substance: ARIPIPRAZOLE
     Indication: MENTAL DISORDER
     Dosage: UNK
     Route: 065
  3. QUETIAPINE. [Suspect]
     Active Substance: QUETIAPINE
     Indication: MENTAL DISORDER
     Dosage: 1600 MG, QD
     Route: 065
  4. ASENAPINE MALEATE [Suspect]
     Active Substance: ASENAPINE MALEATE
     Indication: MENTAL DISORDER
     Dosage: 10 MG, QD
     Route: 048

REACTIONS (5)
  - Oculogyric crisis [Recovering/Resolving]
  - Excessive eye blinking [Recovering/Resolving]
  - Product use in unapproved indication [Unknown]
  - Dystonia [Recovering/Resolving]
  - Eye movement disorder [Recovering/Resolving]
